FAERS Safety Report 21762481 (Version 2)
Quarter: 2022Q4

REPORT INFORMATION
  Report Type: Spontaneous
  Country: US (occurrence: None)
  Receive Date: 20221221
  Receipt Date: 20221226
  Transmission Date: 20230113
  Serious: Yes (Other)
  Sender: FDA-Public Use
  Company Number: 2022A387017

PATIENT
  Age: 73 Year
  Sex: Female
  Weight: 62.1 kg

DRUGS (2)
  1. PULMICORT TURBUHALER [Suspect]
     Active Substance: BUDESONIDE
     Indication: Asthma
     Dosage: 2 INHALATIONS 2 TIMES A DAY
     Route: 055
  2. PULMICORT TURBUHALER [Suspect]
     Active Substance: BUDESONIDE
     Indication: Asthma
     Route: 055
     Dates: start: 2021

REACTIONS (9)
  - Deafness [Unknown]
  - Blindness [Unknown]
  - Amnesia [Unknown]
  - Dyspnoea [Unknown]
  - Influenza [Unknown]
  - Off label use [Unknown]
  - Device use issue [Unknown]
  - Product packaging issue [Unknown]
  - Device issue [Unknown]

NARRATIVE: CASE EVENT DATE: 20220101
